FAERS Safety Report 9284333 (Version 2)
Quarter: 2013Q3

REPORT INFORMATION
  Report Type: Spontaneous
  Country: US (occurrence: US)
  Receive Date: 20130510
  Receipt Date: 20130702
  Transmission Date: 20140515
  Serious: Yes (Other)
  Sender: FDA-Public Use
  Company Number: US-UCBSA-085213

PATIENT
  Sex: Female

DRUGS (3)
  1. VIMPAT [Suspect]
     Dosage: 200 MG IN AM AND 200 MG IN PM
  2. DILANTIN [Concomitant]
     Dosage: 300 MG Q.D.M
  3. PHENOBARBITAL [Concomitant]
     Dosage: UNKNOWN DOSE

REACTIONS (2)
  - Convulsion [Unknown]
  - Drug ineffective [Unknown]
